FAERS Safety Report 14013080 (Version 3)
Quarter: 2018Q2

REPORT INFORMATION
  Report Type: Spontaneous
  Country: US (occurrence: US)
  Receive Date: 20170926
  Receipt Date: 20180416
  Transmission Date: 20180711
  Serious: Yes (Other)
  Sender: FDA-Public Use
  Company Number: US-PFIZER INC-2017413878

PATIENT
  Age: 54 Year
  Sex: Female
  Weight: 66.21 kg

DRUGS (1)
  1. XELJANZ XR [Suspect]
     Active Substance: TOFACITINIB CITRATE
     Indication: RHEUMATOID ARTHRITIS
     Dosage: 11 MG, DAILY
     Route: 048
     Dates: start: 2014, end: 20171208

REACTIONS (9)
  - Diverticulitis [Unknown]
  - Bronchitis [Recovered/Resolved]
  - Sinus disorder [Unknown]
  - Vitamin D decreased [Unknown]
  - Muscle spasms [Unknown]
  - Vitamin B12 decreased [Unknown]
  - Oropharyngeal pain [Unknown]
  - Abdominal pain upper [Unknown]
  - Arthralgia [Unknown]

NARRATIVE: CASE EVENT DATE: 20180328
